FAERS Safety Report 8575644-6 (Version None)
Quarter: 2012Q3

REPORT INFORMATION
  Report Type: 
  Country: None (occurrence: None)
  Receive Date: 20120807
  Receipt Date: 20120726
  Transmission Date: 20120928
  Serious: Yes (Other)
  Sender: FDA-Public Use
  Company Number: US-BRISTOL-MYERS SQUIBB COMPANY-16357469

PATIENT
  Age: 70 Year
  Sex: Female

DRUGS (1)
  1. ORENCIA [Suspect]
     Indication: RHEUMATOID ARTHRITIS
     Dosage: INF: 3. LAST INF: 17DEC11,20JUN12 MISSED DOSE:JUL2012
     Route: 042
     Dates: start: 20111201

REACTIONS (9)
  - MUSCULOSKELETAL STIFFNESS [None]
  - INFLUENZA [None]
  - RHEUMATOID ARTHRITIS [None]
  - DEPRESSION [None]
  - OEDEMA PERIPHERAL [None]
  - DRUG DOSE OMISSION [None]
  - ARTHROPATHY [None]
  - ARTHRALGIA [None]
  - HEADACHE [None]
